FAERS Safety Report 22245724 (Version 1)
Quarter: 2023Q2

REPORT INFORMATION
  Report Type: Spontaneous
  Country: FR (occurrence: FR)
  Receive Date: 20230424
  Receipt Date: 20230424
  Transmission Date: 20230721
  Serious: Yes (Hospitalization)
  Sender: FDA-Public Use
  Company Number: FR-SA-SAC20230421000305

PATIENT
  Age: 58 Year
  Sex: Male
  Weight: 72 kg

DRUGS (4)
  1. DUPIXENT [Suspect]
     Active Substance: DUPILUMAB
     Indication: Asthma
     Dosage: 300 MG, QOW
     Route: 058
     Dates: start: 20211203, end: 20211229
  2. MONTELUKAST [Concomitant]
     Active Substance: MONTELUKAST SODIUM
     Indication: Asthma
     Dosage: UNK
     Dates: start: 20221201
  3. CORTICOSTEROID NOS [Concomitant]
     Active Substance: CORTICOSTEROID NOS
     Indication: Asthma
     Dosage: UNK
     Route: 055
  4. NUCALA [Concomitant]
     Active Substance: MEPOLIZUMAB
     Indication: Asthma
     Dosage: 100 MG, Q4W
     Route: 058
     Dates: start: 20200610, end: 20211124

REACTIONS (2)
  - Cough [Recovering/Resolving]
  - Wheezing [Recovering/Resolving]

NARRATIVE: CASE EVENT DATE: 20211203
